FAERS Safety Report 8459078-0 (Version None)
Quarter: 2012Q2

REPORT INFORMATION
  Report Type: 
  Country: None (occurrence: None)
  Receive Date: 20120622
  Receipt Date: 20120619
  Transmission Date: 20120825
  Serious: Yes (Death, Other)
  Sender: FDA-Public Use
  Company Number: US-AMGEN-USASP2012000273

PATIENT

DRUGS (5)
  1. DOCETAXEL [Suspect]
     Indication: BREAST CANCER METASTATIC
     Dosage: 60 MG/M2, UNK
     Route: 042
  2. VINORELBINE [Suspect]
     Indication: BREAST CANCER METASTATIC
     Dosage: 27.5 MG/M2, PER CHEMO REGIM
     Route: 042
  3. FILGRASTIM [Suspect]
     Indication: BREAST CANCER METASTATIC
     Dosage: 5 MUG/KG, PER CHEMO REGIM
  4. TRASTUZUMAB [Suspect]
     Dosage: 2 MG/KG, QWK
     Route: 042
  5. TRASTUZUMAB [Suspect]
     Indication: BREAST CANCER METASTATIC
     Dosage: 4 MG/KG, ONE TIME DOSE
     Route: 042

REACTIONS (42)
  - LETHARGY [None]
  - HYPERGLYCAEMIA [None]
  - HYPERMAGNESAEMIA [None]
  - LYMPHOPENIA [None]
  - SYNCOPE [None]
  - THROMBOSIS [None]
  - FEBRILE NEUTROPENIA [None]
  - HEADACHE [None]
  - LEUKOPENIA [None]
  - BLOOD ALKALINE PHOSPHATASE INCREASED [None]
  - MALAISE [None]
  - EJECTION FRACTION DECREASED [None]
  - GRANULOCYTOPENIA [None]
  - RESPIRATORY TRACT INFECTION [None]
  - ALANINE AMINOTRANSFERASE INCREASED [None]
  - CHEST PAIN [None]
  - DEPRESSION [None]
  - DIARRHOEA [None]
  - DYSPNOEA [None]
  - MUSCULAR WEAKNESS [None]
  - PNEUMONITIS [None]
  - PERIPHERAL SENSORY NEUROPATHY [None]
  - POSTOPERATIVE WOUND INFECTION [None]
  - ANAEMIA [None]
  - FATIGUE [None]
  - HYPOPHOSPHATAEMIA [None]
  - INFECTION [None]
  - NEUTROPENIC INFECTION [None]
  - NEUTROPENIA [None]
  - PERICARDIAL EFFUSION [None]
  - DISEASE PROGRESSION [None]
  - HYPOKALAEMIA [None]
  - HYPOTENSION [None]
  - DEATH [None]
  - ARTHRALGIA [None]
  - DEVICE RELATED INFECTION [None]
  - DEHYDRATION [None]
  - DYSPEPSIA [None]
  - HYPOXIA [None]
  - PAIN [None]
  - VOMITING [None]
  - BONE PAIN [None]
